FAERS Safety Report 5537511-1 (Version None)
Quarter: 2007Q4

REPORT INFORMATION
  Report Type: 
  Country: None (occurrence: None)
  Receive Date: 20071207
  Receipt Date: 20071203
  Transmission Date: 20080405
  Serious: Yes (Hospitalization)
  Sender: FDA-Public Use
  Company Number: US-MERCK-0712USA01224

PATIENT
  Age: 72 Year
  Sex: Male

DRUGS (4)
  1. JANUMET [Suspect]
     Indication: TYPE 2 DIABETES MELLITUS
     Route: 048
  2. DIOVAN [Concomitant]
     Route: 065
  3. OMEGA PLUS [Concomitant]
     Route: 065
  4. TRICOR [Concomitant]
     Route: 065

REACTIONS (1)
  - ABASIA [None]
